FAERS Safety Report 9909545 (Version 2)
Quarter: 2014Q1

REPORT INFORMATION
  Report Type: Spontaneous
  Country: US (occurrence: US)
  Receive Date: 20140219
  Receipt Date: 20140321
  Transmission Date: 20141002
  Serious: No
  Sender: FDA-Public Use
  Company Number: US-009507513-1402USA007645

PATIENT
  Age: 14 Year
  Sex: Female
  Weight: 106.6 kg

DRUGS (1)
  1. NEXPLANON [Suspect]
     Indication: CONTRACEPTION
     Dosage: SINGLE ROD
     Route: 059
     Dates: start: 20131212, end: 201401

REACTIONS (2)
  - Device expulsion [Unknown]
  - Application site scab [Unknown]
